FAERS Safety Report 11666575 (Version 2)
Quarter: 2015Q4

REPORT INFORMATION
  Report Type: Report from Study
  Country: US (occurrence: US)
  Receive Date: 20151027
  Receipt Date: 20151028
  Transmission Date: 20160304
  Serious: No
  Sender: FDA-Public Use
  Company Number: PHEH2014US021324

PATIENT
  Age: 82 Year
  Sex: Female
  Weight: 68.9 kg

DRUGS (3)
  1. EXJADE [Suspect]
     Active Substance: DEFERASIROX
     Dosage: 2 DF, QD (DISSOLVED)
     Route: 048
     Dates: start: 201404
  2. EXJADE [Suspect]
     Active Substance: DEFERASIROX
     Indication: MYELODYSPLASTIC SYNDROME
     Dosage: 2 DF, QD
     Route: 048
     Dates: start: 20131007
  3. EXJADE [Suspect]
     Active Substance: DEFERASIROX
     Dosage: 2 DF, QD
     Route: 048

REACTIONS (1)
  - Sciatica [Not Recovered/Not Resolved]

NARRATIVE: CASE EVENT DATE: 20141020
